FAERS Safety Report 5254937-4 (Version None)
Quarter: 2007Q1

REPORT INFORMATION
  Report Type: 
  Country: None (occurrence: None)
  Receive Date: 20070228
  Receipt Date: 20070212
  Transmission Date: 20070707
  Serious: Yes (Hospitalization)
  Sender: FDA-Public Use
  Company Number: DSA_29377_2007

PATIENT
  Age: 55 Year
  Sex: Female

DRUGS (13)
  1. ATIVAN [Suspect]
     Indication: INSOMNIA
     Dosage: DF ONCE PO
     Route: 048
     Dates: start: 20061208, end: 20061208
  2. ATIVAN [Concomitant]
  3. EPOGEN [Concomitant]
  4. ZEMPLAR [Concomitant]
  5. DEPAKOTE [Concomitant]
  6. RENAX [Concomitant]
  7. PAXIL [Concomitant]
  8. ZYPREXA [Concomitant]
  9. NEURONTIN [Concomitant]
  10. SYNTHROID [Concomitant]
  11. FOSRENOL [Concomitant]
  12. SENSIPAR [Concomitant]
  13. RENAGEL [Concomitant]

REACTIONS (10)
  - ACCIDENTAL OVERDOSE [None]
  - ASTERIXIS [None]
  - ATRIOVENTRICULAR BLOCK FIRST DEGREE [None]
  - DYSARTHRIA [None]
  - ENCEPHALOPATHY [None]
  - HAEMATOMA [None]
  - HAEMOGLOBIN DECREASED [None]
  - HEAD INJURY [None]
  - LETHARGY [None]
  - SOMNOLENCE [None]
